FAERS Safety Report 18188393 (Version 2)
Quarter: 2020Q3

REPORT INFORMATION
  Report Type: Report from Study
  Country: US (occurrence: US)
  Receive Date: 20200824
  Receipt Date: 20200917
  Transmission Date: 20201103
  Serious: Yes (Other)
  Sender: FDA-Public Use
  Company Number: US-MALLINCKRODT-T202001758

PATIENT
  Age: 65 Year
  Sex: Female

DRUGS (3)
  1. REPOSITORY CORTICOTROPIN INJECTION [Suspect]
     Active Substance: CORTICOTROPIN
     Dosage: 40 UNITS ONCE A WEEK
     Route: 065
     Dates: start: 202008
  2. REPOSITORY CORTICOTROPIN INJECTION [Suspect]
     Active Substance: CORTICOTROPIN
     Indication: RHEUMATOID ARTHRITIS
     Dosage: 40 UNITS, EVERY 72 HOURS
     Route: 058
     Dates: start: 202002, end: 2020
  3. REPOSITORY CORTICOTROPIN INJECTION [Suspect]
     Active Substance: CORTICOTROPIN
     Dosage: 40 UNITS, EVERY OTHER DAY
     Route: 058
     Dates: start: 2020, end: 2020

REACTIONS (18)
  - Joint warmth [Unknown]
  - Abdominal distension [Not Recovered/Not Resolved]
  - Therapeutic product effect incomplete [Not Recovered/Not Resolved]
  - Bone pain [Unknown]
  - Arthralgia [Unknown]
  - Cataract [Not Recovered/Not Resolved]
  - Anaemia [Unknown]
  - Hot flush [Not Recovered/Not Resolved]
  - Paraesthesia [Not Recovered/Not Resolved]
  - Hyperhidrosis [Not Recovered/Not Resolved]
  - Confusional state [Unknown]
  - Eye injury [Unknown]
  - Time perception altered [Not Recovered/Not Resolved]
  - Abdominal pain upper [Not Recovered/Not Resolved]
  - Vision blurred [Unknown]
  - Product dose omission issue [Recovered/Resolved]
  - Cataract operation [Unknown]
  - Suffocation feeling [Not Recovered/Not Resolved]

NARRATIVE: CASE EVENT DATE: 2020
